FAERS Safety Report 14782977 (Version 1)
Quarter: 2018Q2

REPORT INFORMATION
  Report Type: Spontaneous
  Country: CY (occurrence: CY)
  Receive Date: 20180420
  Receipt Date: 20180420
  Transmission Date: 20180711
  Serious: Yes (Hospitalization)
  Sender: FDA-Public Use
  Company Number: CY-BAYER-2018-044943

PATIENT
  Age: 67 Year
  Sex: Female

DRUGS (1)
  1. GADOVIST [Suspect]
     Active Substance: GADOBUTROL
     Indication: NUCLEAR MAGNETIC RESONANCE IMAGING BREAST
     Dosage: 10 ML, ONCE
     Route: 042
     Dates: start: 20180306, end: 20180306

REACTIONS (5)
  - Hypersensitivity [Recovered/Resolved]
  - Oedema [None]
  - Hypotension [Recovered/Resolved]
  - Hypotension [None]
  - Syncope [Recovered/Resolved]

NARRATIVE: CASE EVENT DATE: 20180306
